FAERS Safety Report 18510113 (Version 8)
Quarter: 2021Q3

REPORT INFORMATION
  Report Type: Spontaneous
  Country: GB (occurrence: GB)
  Receive Date: 20201117
  Receipt Date: 20210915
  Transmission Date: 20211014
  Serious: Yes (Hospitalization, Other)
  Sender: FDA-Public Use
  Company Number: GB-SA-2020SA282923

PATIENT
  Sex: Female

DRUGS (6)
  1. CEREZYME [Suspect]
     Active Substance: IMIGLUCERASE
     Dosage: 2400 IU, QOW (6 X 400 UNIT VIAL)
     Route: 041
  2. CITALOPRAM [Concomitant]
     Active Substance: CITALOPRAM HYDROBROMIDE
     Dosage: UNK
     Route: 065
  3. CEREZYME [Suspect]
     Active Substance: IMIGLUCERASE
     Indication: GAUCHER^S DISEASE TYPE I
     Dosage: 2400 IU, QOW (6 X 400 UNIT VIAL)
     Route: 041
     Dates: start: 201311
  4. CEREZYME [Suspect]
     Active Substance: IMIGLUCERASE
     Dosage: 2400 IU, QOW
     Route: 041
     Dates: start: 2014
  5. CEREZYME [Suspect]
     Active Substance: IMIGLUCERASE
     Dosage: 3200 IU, Q4W
     Route: 041
  6. OMEPRAZOLE. [Concomitant]
     Active Substance: OMEPRAZOLE
     Dosage: UNK
     Route: 065

REACTIONS (18)
  - Incorrect dose administered [Unknown]
  - Hypersomnia [Unknown]
  - Emotional disorder [Unknown]
  - Lethargy [Unknown]
  - Anxiety [Unknown]
  - Catheter site pain [Unknown]
  - Malaise [Unknown]
  - Fatigue [Unknown]
  - Illness [Unknown]
  - Hypertension [Unknown]
  - Deep vein thrombosis [Unknown]
  - Decreased appetite [Unknown]
  - Nasopharyngitis [Unknown]
  - Poor venous access [Unknown]
  - Product dose omission issue [Unknown]
  - Sneezing [Unknown]
  - Oropharyngeal pain [Unknown]
  - Skin mass [Unknown]

NARRATIVE: CASE EVENT DATE: 202012
